FAERS Safety Report 5537742-0 (Version None)
Quarter: 2007Q4

REPORT INFORMATION
  Report Type: 
  Country: None (occurrence: None)
  Receive Date: 20071207
  Receipt Date: 20071130
  Transmission Date: 20080405
  Serious: Yes (Other)
  Sender: FDA-Public Use
  Company Number: HQWYE699902AUG04

PATIENT
  Sex: Female

DRUGS (1)
  1. PREMPRO [Suspect]

REACTIONS (4)
  - CUTANEOUS LUPUS ERYTHEMATOSUS [None]
  - FACIAL PALSY [None]
  - INTERVERTEBRAL DISC DEGENERATION [None]
  - MIGRAINE [None]
